FAERS Safety Report 19192534 (Version 1)
Quarter: 2021Q2

REPORT INFORMATION
  Report Type: Spontaneous
  Country: CA (occurrence: CA)
  Receive Date: 20210429
  Receipt Date: 20210429
  Transmission Date: 20210717
  Serious: Yes (Life-Threatening, Hospitalization, Disabling)
  Sender: FDA-Public Use
  Company Number: CA-TEVA-2021-CA-1904091

PATIENT
  Age: 88 Year
  Sex: Female

DRUGS (9)
  1. QUETIAPINE FUMARATE. [Suspect]
     Active Substance: QUETIAPINE FUMARATE
     Indication: ANXIETY
     Dosage: 150 MILLIGRAM DAILY;
     Route: 048
  2. PERINDOPRIL [Concomitant]
     Active Substance: PERINDOPRIL
     Route: 065
  3. TENORMIN [Concomitant]
     Active Substance: ATENOLOL
     Route: 065
  4. AMLODIPINE BESILATE [Concomitant]
     Active Substance: AMLODIPINE BESYLATE
     Route: 065
  5. REMERON [Concomitant]
     Active Substance: MIRTAZAPINE
     Route: 065
  6. PREGABALIN. [Suspect]
     Active Substance: PREGABALIN
     Indication: ANXIETY
     Dosage: 50 MILLIGRAM DAILY;
     Route: 048
  7. CITALOPRAM HYDROBROMIDE. [Concomitant]
     Active Substance: CITALOPRAM HYDROBROMIDE
     Route: 065
  8. HYDRODIURIL [Concomitant]
     Active Substance: HYDROCHLOROTHIAZIDE
     Route: 065
  9. ATIVAN [Concomitant]
     Active Substance: LORAZEPAM
     Route: 065

REACTIONS (6)
  - Skull fracture [Unknown]
  - Off label use [Unknown]
  - Concomitant disease aggravated [Unknown]
  - Product use in unapproved indication [Unknown]
  - Cerebral haemorrhage [Unknown]
  - Fall [Unknown]
